FAERS Safety Report 9888998 (Version 1)
Quarter: 2014Q1

REPORT INFORMATION
  Report Type: Spontaneous
  Country: US (occurrence: None)
  Receive Date: 20140207
  Receipt Date: 20140207
  Transmission Date: 20141002
  Serious: Yes (Other)
  Sender: FDA-Public Use
  Company Number: SYM-2013-13197

PATIENT
  Age: 34 Year
  Sex: Male

DRUGS (1)
  1. ZIANA [Suspect]
     Indication: SKIN DISORDER
     Dosage: TOPICAL
     Route: 061
     Dates: start: 201302, end: 201303

REACTIONS (7)
  - Rosacea [None]
  - Flushing [None]
  - Vascular rupture [None]
  - Skin discolouration [None]
  - Application site reaction [None]
  - Skin wrinkling [None]
  - Suicidal ideation [None]
